FAERS Safety Report 4797271-9 (Version None)
Quarter: 2005Q4

REPORT INFORMATION
  Report Type: 
  Country: None (occurrence: None)
  Receive Date: 20051013
  Receipt Date: 20051006
  Transmission Date: 20060501
  Serious: Yes (Other)
  Sender: FDA-Public Use
  Company Number: S05-USA-03755-01

PATIENT
  Age: 43 Year
  Sex: Male

DRUGS (10)
  1. STELAZINE [Suspect]
     Indication: FIBROMYALGIA
     Dosage: 5MG PER DAY
     Route: 048
     Dates: start: 20011011
  2. CELEXA [Suspect]
     Indication: ANXIETY
     Route: 048
     Dates: start: 20020508, end: 20031001
  3. PREVACID [Concomitant]
     Route: 065
  4. XANAX [Concomitant]
     Route: 065
     Dates: start: 20011011
  5. CELEBREX [Concomitant]
  6. KLONOPIN [Concomitant]
     Dates: start: 20010731
  7. LEXAPRO [Concomitant]
     Dates: start: 20021017
  8. REMERON [Concomitant]
     Dates: start: 20030908
  9. RISPERDAL [Concomitant]
     Dosage: .25MG TWICE PER DAY
     Dates: start: 20030701
  10. TRILEPTAL [Concomitant]
     Dates: start: 20040217

REACTIONS (11)
  - BIPOLAR DISORDER [None]
  - CONDITION AGGRAVATED [None]
  - CONSTIPATION [None]
  - DISTURBANCE IN ATTENTION [None]
  - DRUG INTERACTION INHIBITION [None]
  - ERECTILE DYSFUNCTION [None]
  - FIBROMYALGIA [None]
  - HYPERHIDROSIS [None]
  - LIBIDO DECREASED [None]
  - MEMORY IMPAIRMENT [None]
  - THINKING ABNORMAL [None]
